APPROVED DRUG PRODUCT: ALPHAREDISOL
Active Ingredient: HYDROXOCOBALAMIN
Strength: 1MG/ML
Dosage Form/Route: INJECTABLE;INJECTION
Application: A080778 | Product #001
Applicant: MERCK AND CO INC
Approved: Approved Prior to Jan 1, 1982 | RLD: No | RS: No | Type: DISCN